FAERS Safety Report 21500647 (Version 1)
Quarter: 2022Q4

REPORT INFORMATION
  Report Type: Spontaneous
  Country: US (occurrence: None)
  Receive Date: 20221025
  Receipt Date: 20221025
  Transmission Date: 20230113
  Serious: Yes (Death)
  Sender: FDA-Public Use
  Company Number: US-ROCHE-3205933

PATIENT
  Sex: Female
  Weight: 106.24 kg

DRUGS (3)
  1. XELODA [Suspect]
     Active Substance: CAPECITABINE
     Indication: Breast cancer
     Dosage: 4 TABLETS BY MOUTH TWICE DAILY FOR 14 DAYS OF A 21 DAY CYCLE
     Route: 048
  2. LASIX [Concomitant]
     Active Substance: FUROSEMIDE
     Indication: Pleural effusion
     Dosage: SCRIPT DATE SHOWS PRESCRIBED DATE AS 1/1/1980
     Route: 048
  3. ANASTROZOLE [Concomitant]
     Active Substance: ANASTROZOLE
     Dosage: HORMONE BASED CHEMOTHERAPY
     Route: 048

REACTIONS (1)
  - Death [Fatal]
